FAERS Safety Report 4504598-4 (Version None)
Quarter: 2004Q4

REPORT INFORMATION
  Report Type: 
  Country: None (occurrence: None)
  Receive Date: 20041118
  Receipt Date: 20021231
  Transmission Date: 20050328
  Serious: Yes (Hospitalization)
  Sender: FDA-Public Use
  Company Number: UG-GLAXOSMITHKLINE-B0281213B

PATIENT
  Age: 28 Year
  Sex: Female

DRUGS (5)
  1. COMBIVIR [Suspect]
     Indication: HIV INFECTION
     Route: 048
     Dates: start: 20020620
  2. SAQUINAVIR SOFT GEL [Suspect]
     Indication: HIV INFECTION
     Dates: start: 20020620
  3. RITONAVIR [Suspect]
     Indication: HIV INFECTION
     Dates: start: 20020620
  4. COTRIMOXAZOLE [Suspect]
     Dates: start: 20021223
  5. AMOXICILLIN TRIHYDRATE [Concomitant]

REACTIONS (12)
  - ALANINE AMINOTRANSFERASE INCREASED [None]
  - ASPARTATE AMINOTRANSFERASE INCREASED [None]
  - BLOOD ALKALINE PHOSPHATASE INCREASED [None]
  - CHILLS [None]
  - DRUG HYPERSENSITIVITY [None]
  - HEADACHE [None]
  - HEPATIC ENZYME INCREASED [None]
  - HYPERAEMIA [None]
  - PYREXIA [None]
  - RASH MORBILLIFORM [None]
  - URINARY TRACT INFECTION [None]
  - VOMITING [None]
